FAERS Safety Report 5510219-4 (Version None)
Quarter: 2007Q4

REPORT INFORMATION
  Report Type: 
  Country: None (occurrence: None)
  Receive Date: 20071106
  Receipt Date: 20071106
  Transmission Date: 20080405
  Serious: Yes (Other)
  Sender: FDA-Public Use
  Company Number: None

PATIENT
  Sex: Male
  Weight: 11.3399 kg

DRUGS (1)
  1. INFANT TYLENOL [Suspect]
     Indication: IMMUNISATION
     Dosage: 1.6 ML

REACTIONS (3)
  - LIP DISCOLOURATION [None]
  - PERIPHERAL COLDNESS [None]
  - TREMOR [None]
